FAERS Safety Report 8991808 (Version 2)
Quarter: 2013Q1

REPORT INFORMATION
  Report Type: Report from Study
  Country: US (occurrence: US)
  Receive Date: 20121231
  Receipt Date: 20130128
  Transmission Date: 20140127
  Serious: Yes (Hospitalization, Other)
  Sender: FDA-Public Use
  Company Number: US-JNJFOC-20121211235

PATIENT
  Age: 78 None
  Sex: Female
  Weight: 45.36 kg

DRUGS (2)
  1. REMICADE [Suspect]
     Indication: CROHN^S DISEASE
     Route: 042
     Dates: start: 201203
  2. FORTEO [Concomitant]
     Indication: OSTEOPOROSIS
     Route: 065
     Dates: start: 2010

REACTIONS (6)
  - Gastrointestinal disorder [Not Recovered/Not Resolved]
  - Blood potassium abnormal [Unknown]
  - Nephrolithiasis [Recovered/Resolved]
  - Anaemia [Unknown]
  - Dehydration [Unknown]
  - Myocardial infarction [Recovered/Resolved]
